FAERS Safety Report 11227457 (Version 1)
Quarter: 2015Q2

REPORT INFORMATION
  Report Type: Spontaneous
  Country: US (occurrence: US)
  Receive Date: 20150630
  Receipt Date: 20150630
  Transmission Date: 20150821
  Serious: Yes (Death)
  Sender: FDA-Public Use
  Company Number: US-TARO PHARMACEUTICALS U.S.A., INC-2015SUN01511

PATIENT

DRUGS (1)
  1. ACETAMINOPHEN SUPPOSITORY [Suspect]
     Active Substance: ACETAMINOPHEN
     Dosage: UNK
     Route: 054

REACTIONS (3)
  - Drug-induced liver injury [Fatal]
  - Overdose [Fatal]
  - Toxicity to various agents [None]
